FAERS Safety Report 17142293 (Version 1)
Quarter: 2019Q4

REPORT INFORMATION
  Report Type: Spontaneous
  Country: US (occurrence: US)
  Receive Date: 20191211
  Receipt Date: 20191211
  Transmission Date: 20200122
  Serious: No
  Sender: FDA-Public Use
  Company Number: US-JUBILANT CADISTA PHARMACEUTICALS-2019JUB00196

PATIENT
  Age: 29 Year
  Sex: Female

DRUGS (1)
  1. METHYLPREDNISOLONE. [Suspect]
     Active Substance: METHYLPREDNISOLONE
     Indication: UNEVALUABLE EVENT
     Dosage: 8 MG, 3X/DAY
     Route: 048
     Dates: start: 201905

REACTIONS (1)
  - Drug screen positive [Unknown]
